FAERS Safety Report 11815095 (Version 1)
Quarter: 2015Q4

REPORT INFORMATION
  Report Type: Spontaneous
  Country: US (occurrence: US)
  Receive Date: 20151209
  Receipt Date: 20151209
  Transmission Date: 20160305
  Serious: No
  Sender: FDA-Public Use
  Company Number: US-SA-2015SA165715

PATIENT
  Age: 60 Year
  Sex: Female

DRUGS (4)
  1. TOUJEO [Suspect]
     Active Substance: INSULIN GLARGINE
     Indication: TYPE 2 DIABETES MELLITUS
     Dosage: DOSE:14 UNIT(S)
     Route: 065
     Dates: start: 20151014
  2. SOLOSTAR [Concomitant]
     Active Substance: DEVICE
     Dates: start: 20151014
  3. SOLOSTAR [Concomitant]
     Active Substance: DEVICE
     Dates: start: 20151007
  4. TOUJEO [Suspect]
     Active Substance: INSULIN GLARGINE
     Indication: TYPE 2 DIABETES MELLITUS
     Dosage: DOSE:10 UNIT(S)
     Route: 065
     Dates: start: 20151007

REACTIONS (2)
  - Fatigue [Unknown]
  - Chest discomfort [Unknown]
